FAERS Safety Report 8401583-7 (Version None)
Quarter: 2012Q2

REPORT INFORMATION
  Report Type: 
  Country: None (occurrence: None)
  Receive Date: 20120525
  Receipt Date: 20120514
  Transmission Date: 20120825
  Serious: Yes (Hospitalization, Other)
  Sender: FDA-Public Use
  Company Number: 2012P1027040

PATIENT
  Age: 50 Year
  Sex: Female

DRUGS (5)
  1. CEFTRIAXONE [Suspect]
     Indication: CONDITION AGGRAVATED
  2. CEFTRIAXONE [Suspect]
     Indication: SKIN DISORDER
  3. BISOPROLOL FUMARATE [Concomitant]
  4. ACITRETIN [Suspect]
     Indication: PSORIASIS
  5. INDAPAMIDUM [Concomitant]

REACTIONS (16)
  - FACE OEDEMA [None]
  - RED BLOOD CELL SEDIMENTATION RATE INCREASED [None]
  - FIBRIN D DIMER INCREASED [None]
  - TRI-IODOTHYRONINE FREE DECREASED [None]
  - OEDEMA PERIPHERAL [None]
  - HAEMATOCRIT DECREASED [None]
  - BLOOD THYROID STIMULATING HORMONE DECREASED [None]
  - TRI-IODOTHYRONINE FREE INCREASED [None]
  - DRUG INTERACTION [None]
  - HAEMOGLOBIN DECREASED [None]
  - C-REACTIVE PROTEIN INCREASED [None]
  - BLOOD IMMUNOGLOBULIN E INCREASED [None]
  - HYPERKERATOSIS [None]
  - ERYTHRODERMIC PSORIASIS [None]
  - BETA 2 MICROGLOBULIN INCREASED [None]
  - NEUTROPHIL PERCENTAGE INCREASED [None]
